FAERS Safety Report 16904189 (Version 2)
Quarter: 2019Q4

REPORT INFORMATION
  Report Type: Spontaneous
  Country: GB (occurrence: GB)
  Receive Date: 20191010
  Receipt Date: 20191011
  Transmission Date: 20200122
  Serious: Yes (Life-Threatening, Hospitalization, Disabling)
  Sender: FDA-Public Use
  Company Number: GB-MYLANLABS-2019M1094732

PATIENT
  Age: 48 Year
  Sex: Female
  Weight: 95 kg

DRUGS (17)
  1. LANSOPRAZOLE. [Suspect]
     Active Substance: LANSOPRAZOLE
     Indication: ILL-DEFINED DISORDER
     Dosage: 20 MICROGRAM
     Route: 048
     Dates: start: 20100303
  2. LAXIDO [Suspect]
     Active Substance: POLYETHYLENE GLYCOL 3350\POTASSIUM CHLORIDE\SODIUM BICARBONATE\SODIUM CHLORIDE
     Indication: ILL-DEFINED DISORDER
     Dosage: UNK (BLOCKED BOWEL SO 3 TO FOUR SACHETS THEN TWO THEN STIOPPED AS KIDNEY FUNCTION AFFECTED)
     Route: 048
     Dates: start: 20180707, end: 20181212
  3. LYRICA [Suspect]
     Active Substance: PREGABALIN
     Indication: BACK PAIN
     Dosage: QD (50MG AM PLUS 100MCG PM)
     Dates: start: 20100303, end: 20101010
  4. OMEPRAZOLE. [Suspect]
     Active Substance: OMEPRAZOLE
     Indication: PRODUCT USED FOR UNKNOWN INDICATION
     Dosage: UNK
  5. SERETIDE [Concomitant]
     Active Substance: FLUTICASONE PROPIONATE\SALMETEROL XINAFOATE
     Indication: ILL-DEFINED DISORDER
     Dosage: 250
  6. NASEPTIN [Concomitant]
     Active Substance: CHLORHEXIDINE HYDROCHLORIDE\NEOMYCIN SULFATE
     Dosage: UNK
  7. LYRICA [Suspect]
     Active Substance: PREGABALIN
     Indication: ILL-DEFINED DISORDER
     Dosage: 50MG AM PLUS 100MCG PM
     Route: 048
     Dates: start: 20100302, end: 20101010
  8. CALCIPOTRIOL [Concomitant]
     Active Substance: CALCIPOTRIENE
     Dosage: UNK
  9. MOMETASONE [Concomitant]
     Active Substance: MOMETASONE
     Indication: ILL-DEFINED DISORDER
     Dosage: UNK
  10. GUARAPROLOSE [Concomitant]
     Dosage: UNK
     Route: 047
  11. LAXIDO [Suspect]
     Active Substance: POLYETHYLENE GLYCOL 3350\POTASSIUM CHLORIDE\SODIUM BICARBONATE\SODIUM CHLORIDE
     Indication: INTESTINAL OBSTRUCTION
  12. THYROXINE [Concomitant]
     Active Substance: LEVOTHYROXINE
     Indication: HYPOTHYROIDISM
  13. CANDESARTAN. [Concomitant]
     Active Substance: CANDESARTAN
     Indication: ILL-DEFINED DISORDER
     Dosage: 4 MILLIGRAM
  14. LANSOPRAZOLE. [Suspect]
     Active Substance: LANSOPRAZOLE
     Indication: GASTRIC ULCER
  15. COCODAMOL [Suspect]
     Active Substance: ACETAMINOPHEN\CODEINE PHOSPHATE
     Indication: BACK PAIN
     Dosage: UNK (UP TO 8 A DAY AT TIMES BUT 30MG/500MG)
     Route: 048
     Dates: start: 20081010, end: 20181212
  16. SALBUTAMOL [Concomitant]
     Active Substance: ALBUTEROL
     Indication: ILL-DEFINED DISORDER
     Dosage: UNK
  17. THYROXINE [Concomitant]
     Active Substance: LEVOTHYROXINE
     Indication: ILL-DEFINED DISORDER
     Dosage: 125 MICROGRAM

REACTIONS (7)
  - Ulcer haemorrhage [Unknown]
  - Faecaloma [Unknown]
  - Intestinal obstruction [Recovered/Resolved with Sequelae]
  - Pneumonia [Unknown]
  - Blood pressure decreased [Recovered/Resolved with Sequelae]
  - Renal impairment [Recovered/Resolved with Sequelae]
  - Myxoedema [Recovered/Resolved with Sequelae]

NARRATIVE: CASE EVENT DATE: 2011
